FAERS Safety Report 7937454-X (Version None)
Quarter: 2011Q4

REPORT INFORMATION
  Report Type: 
  Country: None (occurrence: None)
  Receive Date: 20111123
  Receipt Date: 20111110
  Transmission Date: 20120403
  Serious: Yes (Other)
  Sender: FDA-Public Use
  Company Number: PHHY2011NL099829

PATIENT
  Age: 91 Year
  Sex: Male

DRUGS (2)
  1. HYDROCHLOROTHIAZIDE [Suspect]
     Dosage: UNK UKN, UNK
  2. FUROSEMIDE [Suspect]
     Dosage: UNK UKN, UNK

REACTIONS (6)
  - GASTROINTESTINAL HAEMORRHAGE [None]
  - MELANOSIS [None]
  - HAEMODYNAMIC INSTABILITY [None]
  - RECTAL HAEMORRHAGE [None]
  - DIEULAFOY'S VASCULAR MALFORMATION [None]
  - ARTERIAL HAEMORRHAGE [None]
